FAERS Safety Report 5340597-0 (Version None)
Quarter: 2007Q2

REPORT INFORMATION
  Report Type: 
  Country: None (occurrence: None)
  Receive Date: 20070531
  Receipt Date: 20070521
  Transmission Date: 20071010
  Serious: Yes (Hospitalization)
  Sender: FDA-Public Use
  Company Number: FI-ASTRAZENECA-2007SE02898

PATIENT
  Sex: Male

DRUGS (3)
  1. CASODEX [Suspect]
     Indication: PROSTATE CANCER
     Route: 048
     Dates: start: 20070201, end: 20070201
  2. PARATABS [Concomitant]
  3. OXYCONTIN [Concomitant]

REACTIONS (6)
  - ACCIDENTAL OVERDOSE [None]
  - CARDIAC FAILURE [None]
  - DYSPNOEA [None]
  - HEART VALVE INSUFFICIENCY [None]
  - PULMONARY OEDEMA [None]
  - RASH [None]
